FAERS Safety Report 22250634 (Version 1)
Quarter: 2023Q2

REPORT INFORMATION
  Report Type: Spontaneous
  Country: AU (occurrence: None)
  Receive Date: 20230425
  Receipt Date: 20230425
  Transmission Date: 20230721
  Serious: Yes (Other)
  Sender: FDA-Public Use
  Company Number: 2023A089020

PATIENT
  Age: 14 Year
  Sex: Female

DRUGS (2)
  1. SYMBICORT [Suspect]
     Active Substance: BUDESONIDE\FORMOTEROL FUMARATE DIHYDRATE
     Dosage: UNKNOWN UNKNOWN
     Route: 055
  2. VENTOLIN [Suspect]
     Active Substance: ALBUTEROL SULFATE

REACTIONS (9)
  - Cyanosis central [Unknown]
  - Asthma [Unknown]
  - Chest pain [Unknown]
  - Condition aggravated [Unknown]
  - Dyspnoea [Unknown]
  - Malaise [Unknown]
  - Skin discolouration [Unknown]
  - Overdose [Unknown]
  - Wrong technique in product usage process [Unknown]
